FAERS Safety Report 19172126 (Version 1)
Quarter: 2021Q2

REPORT INFORMATION
  Report Type: Spontaneous
  Country: CO (occurrence: CO)
  Receive Date: 20210423
  Receipt Date: 20210423
  Transmission Date: 20210717
  Serious: Yes (Hospitalization, Other)
  Sender: FDA-Public Use
  Company Number: CO-SUN PHARMACEUTICAL INDUSTRIES LTD-2021R1-292024

PATIENT
  Age: 18 Year
  Sex: Female

DRUGS (1)
  1. AMLODIPINE [Suspect]
     Active Substance: AMLODIPINE BESYLATE
     Indication: PRODUCT USED FOR UNKNOWN INDICATION
     Dosage: 60 TABLETS, SINGLE
     Route: 048

REACTIONS (6)
  - Blood pressure decreased [Unknown]
  - Renal impairment [Unknown]
  - Suicide attempt [Unknown]
  - Toxicity to various agents [Unknown]
  - Hypoperfusion [Unknown]
  - Hyperlactacidaemia [Unknown]
